FAERS Safety Report 25479224 (Version 1)
Quarter: 2025Q2

REPORT INFORMATION
  Report Type: Report from Study
  Country: US (occurrence: US)
  Receive Date: 20250625
  Receipt Date: 20250625
  Transmission Date: 20250717
  Serious: Yes (Other)
  Sender: ABBVIE
  Company Number: US-ABBVIE-6200202

PATIENT
  Sex: Male

DRUGS (1)
  1. HUMIRA [Suspect]
     Active Substance: ADALIMUMAB
     Indication: Rheumatoid arthritis
     Route: 058
     Dates: start: 20221101

REACTIONS (3)
  - Lip neoplasm malignant stage unspecified [Not Recovered/Not Resolved]
  - Nerve compression [Not Recovered/Not Resolved]
  - Neoplasm malignant [Not Recovered/Not Resolved]
